FAERS Safety Report 12616602 (Version 1)
Quarter: 2016Q3

REPORT INFORMATION
  Report Type: Report from Study
  Country: US (occurrence: US)
  Receive Date: 20160802
  Receipt Date: 20160802
  Transmission Date: 20161109
  Serious: Yes (Other)
  Sender: FDA-Public Use
  Company Number: US-ABBVIE-16K-163-1686252-00

PATIENT
  Sex: Male

DRUGS (1)
  1. HUMIRA [Suspect]
     Active Substance: ADALIMUMAB
     Indication: PSORIASIS
     Route: 058
     Dates: start: 20160502, end: 20160620

REACTIONS (2)
  - Tendonitis [Recovering/Resolving]
  - Infection susceptibility increased [Recovering/Resolving]

NARRATIVE: CASE EVENT DATE: 2016
